FAERS Safety Report 11248228 (Version 1)
Quarter: 2015Q2

REPORT INFORMATION
  Report Type: Report from Study
  Country: US (occurrence: None)
  Receive Date: 20150617
  Receipt Date: 20150617
  Transmission Date: 20150821
  Serious: No
  Sender: FDA-Public Use
  Company Number: 2014TASUS000569

PATIENT
  Age: 67 Year
  Sex: Male
  Weight: 73.5 kg

DRUGS (6)
  1. LEVOTHYROXINE (LEVOTHYROXINE SODIUM) [Concomitant]
  2. HETLIOZ [Suspect]
     Active Substance: TASIMELTEON
     Indication: CIRCADIAN RHYTHM SLEEP DISORDER
     Route: 048
     Dates: start: 201410, end: 201411
  3. OMEPRAZOLE (OMEPRAZOLE) [Concomitant]
     Active Substance: OMEPRAZOLE
  4. MIRALAX [Concomitant]
     Active Substance: POLYETHYLENE GLYCOL 3350
  5. BUSPAR (BUSPIRONE HYDROCHLORIDE) [Concomitant]
  6. VITAMIN D (COLECALCIFEROL) [Concomitant]

REACTIONS (2)
  - Fatigue [None]
  - Dry mouth [None]
